FAERS Safety Report 16196340 (Version 2)
Quarter: 2020Q1

REPORT INFORMATION
  Report Type: Spontaneous
  Country: US (occurrence: US)
  Receive Date: 20190415
  Receipt Date: 20200109
  Transmission Date: 20200409
  Serious: No
  Sender: FDA-Public Use
  Company Number: US-LEXICON PHARMACEUTICALS, INC-19-1606-00339

PATIENT
  Age: 54 Year
  Sex: Male

DRUGS (6)
  1. AFINITOR [Concomitant]
     Active Substance: EVEROLIMUS
  2. TELOTRISTAT ETHYL [Suspect]
     Active Substance: TELOTRISTAT ETHYL
     Route: 048
     Dates: start: 201903
  3. CREON [Concomitant]
     Active Substance: PANCRELIPASE AMYLASE\PANCRELIPASE LIPASE\PANCRELIPASE PROTEASE
  4. LANREOTIDE [Concomitant]
     Active Substance: LANREOTIDE
  5. TELOTRISTAT ETHYL [Suspect]
     Active Substance: TELOTRISTAT ETHYL
     Indication: CARCINOID TUMOUR
     Route: 048
     Dates: start: 20190306, end: 201903
  6. SANDOSTATIN IR [Concomitant]

REACTIONS (10)
  - Abdominal pain [Not Recovered/Not Resolved]
  - Peripheral swelling [Unknown]
  - Joint swelling [Unknown]
  - Erythema [Unknown]
  - Somnolence [Unknown]
  - Pruritus [Unknown]
  - Diarrhoea [Not Recovered/Not Resolved]
  - Off label use [Recovered/Resolved]
  - Pain [Unknown]
  - Skin warm [Unknown]

NARRATIVE: CASE EVENT DATE: 201903
